FAERS Safety Report 14587226 (Version 2)
Quarter: 2018Q2

REPORT INFORMATION
  Report Type: Spontaneous
  Country: US (occurrence: US)
  Receive Date: 20180301
  Receipt Date: 20180521
  Transmission Date: 20180711
  Serious: No
  Sender: FDA-Public Use
  Company Number: US-BEH-2018088395

PATIENT
  Sex: Female
  Weight: 102.1 kg

DRUGS (16)
  1. SODIUM CHLORIDE. [Concomitant]
     Active Substance: SODIUM CHLORIDE
  2. PROAIR HFA [Concomitant]
     Active Substance: ALBUTEROL SULFATE
  3. DEPO-MEDROL [Concomitant]
     Active Substance: METHYLPREDNISOLONE ACETATE
  4. FLUTICASONE. [Concomitant]
     Active Substance: FLUTICASONE
  5. B COMPLEX                          /00212701/ [Concomitant]
     Active Substance: NIACINAMIDE\PYRIDOXINE\RIBOFLAVIN\THIAMINE
  6. VITAMIN D                          /00107901/ [Concomitant]
     Active Substance: ERGOCALCIFEROL
  7. HAEGARDA [Suspect]
     Active Substance: HUMAN C1-ESTERASE INHIBITOR
     Indication: HEREDITARY ANGIOEDEMA WITH C1 ESTERASE INHIBITOR DEFICIENCY
     Dosage: 6000 IU, EVERY 3-4 DAYS
     Route: 058
     Dates: start: 20170911
  8. CLARITIN [Concomitant]
     Active Substance: LORATADINE
  9. STERILE WATER [Concomitant]
     Active Substance: WATER
  10. SINGULAIR [Concomitant]
     Active Substance: MONTELUKAST SODIUM
  11. SYNTHROID [Concomitant]
     Active Substance: LEVOTHYROXINE SODIUM
  12. CEFPROZIL. [Concomitant]
     Active Substance: CEFPROZIL
  13. FIRAZYR [Concomitant]
     Active Substance: ICATIBANT ACETATE
  14. HAEGARDA [Suspect]
     Active Substance: HUMAN C1-ESTERASE INHIBITOR
     Indication: PROPHYLAXIS
     Dosage: UNK
     Route: 058
  15. EPINEPHRINE. [Concomitant]
     Active Substance: EPINEPHRINE
  16. HEPARIN [Concomitant]
     Active Substance: HEPARIN SODIUM

REACTIONS (1)
  - Urticaria [Unknown]
